FAERS Safety Report 8494066 (Version 2)
Quarter: 2013Q3

REPORT INFORMATION
  Report Type: Report from Study
  Country: MX (occurrence: MX)
  Receive Date: 20120404
  Receipt Date: 20130731
  Transmission Date: 20140515
  Serious: Yes (Other)
  Sender: FDA-Public Use
  Company Number: PHHY2012MX027910

PATIENT
  Age: 10 Year
  Sex: Male

DRUGS (5)
  1. TRILEPTAL [Suspect]
     Indication: EPILEPSY
     Dosage: UNK UKN, UNK
     Route: 048
  2. LAMOTRIGINE [Concomitant]
     Indication: CONVULSION
     Dosage: 100 MG AT NIGHTS AND 75 MG IN THE MORNINGS, DAILY
     Route: 048
     Dates: start: 2009
  3. DEPAKENE [Concomitant]
     Indication: CONVULSION
     Dosage: 3.5 ML, TID
     Dates: start: 2009
  4. RISPERIDONE [Concomitant]
     Indication: CONVULSION
     Dosage: 1 MG, PER DAY
     Dates: start: 2009
  5. RITALIN [Concomitant]
     Indication: MOOD ALTERED
     Dosage: 0.5 DF, DAILY
     Route: 048
     Dates: start: 201110

REACTIONS (5)
  - Cardiac arrest [Unknown]
  - Blood sodium decreased [Unknown]
  - Convulsion [Unknown]
  - Somnolence [Unknown]
  - Blood potassium decreased [Unknown]
